FAERS Safety Report 5195611-2 (Version None)
Quarter: 2006Q4

REPORT INFORMATION
  Report Type: 
  Country: None (occurrence: None)
  Receive Date: 20061226
  Receipt Date: 20061226
  Transmission Date: 20070319
  Serious: Yes (Other)
  Sender: FDA-Public Use
  Company Number: None

PATIENT
  Sex: Male

DRUGS (6)
  1. REVLIMID [Suspect]
     Indication: MULTIPLE MYELOMA
     Dosage: 10 MG DAILY FOR 21 DAYS PO
     Route: 048
     Dates: start: 20061124, end: 20061222
  2. FUROSEMIDE [Concomitant]
  3. CYANOCOBALAMIN [Concomitant]
  4. POTASSIUM ACETATE [Concomitant]
  5. WARFARIN SODIUM [Concomitant]
  6. METOPROLOL SUCCINATE [Concomitant]

REACTIONS (1)
  - PLATELET COUNT DECREASED [None]
